FAERS Safety Report 8186976-8 (Version None)
Quarter: 2012Q1

REPORT INFORMATION
  Report Type: 
  Country: None (occurrence: None)
  Receive Date: 20120213
  Receipt Date: 20111116
  Transmission Date: 20120608
  Serious: No
  Sender: FDA-Public Use
  Company Number: 1000025552

PATIENT
  Age: 45 Year
  Sex: Female

DRUGS (1)
  1. SAVELLA [Suspect]
     Indication: HEADACHE

REACTIONS (2)
  - OFF LABEL USE [None]
  - PARAESTHESIA [None]
